FAERS Safety Report 23398424 (Version 6)
Quarter: 2025Q3

REPORT INFORMATION
  Report Type: Spontaneous
  Country: US (occurrence: US)
  Receive Date: 20240112
  Receipt Date: 20250916
  Transmission Date: 20251021
  Serious: Yes (Other)
  Sender: BRISTOL-MYERS SQUIBB COMPANY
  Company Number: US-BRISTOL-MYERS SQUIBB COMPANY-2024-006450

PATIENT
  Age: 77 Year
  Sex: Female

DRUGS (5)
  1. POMALYST [Suspect]
     Active Substance: POMALIDOMIDE
     Indication: Plasma cell myeloma
     Dates: start: 20231226, end: 20240507
  2. POMALYST [Suspect]
     Active Substance: POMALIDOMIDE
     Dates: start: 202401, end: 20240507
  3. POMALYST [Suspect]
     Active Substance: POMALIDOMIDE
     Dates: start: 202401
  4. POMALYST [Suspect]
     Active Substance: POMALIDOMIDE
     Dates: start: 202401
  5. POMALYST [Suspect]
     Active Substance: POMALIDOMIDE
     Dates: start: 202401

REACTIONS (15)
  - Rash [Recovered/Resolved]
  - Hypoaesthesia [Unknown]
  - Hypoaesthesia oral [Unknown]
  - Dizziness [Unknown]
  - Brain fog [Unknown]
  - Off label use [Unknown]
  - Balance disorder [Unknown]
  - Paraesthesia oral [Unknown]
  - Ocular discomfort [Unknown]
  - Muscular weakness [Unknown]
  - Syncope [Unknown]
  - Diarrhoea [Unknown]
  - Salivary hypersecretion [Unknown]
  - Vomiting [Unknown]
  - Loss of consciousness [Unknown]

NARRATIVE: CASE EVENT DATE: 20240107
